FAERS Safety Report 15961288 (Version 1)
Quarter: 2019Q1

REPORT INFORMATION
  Report Type: Spontaneous
  Country: US (occurrence: US)
  Receive Date: 20190214
  Receipt Date: 20190214
  Transmission Date: 20190417
  Serious: Yes (Hospitalization, Disabling)
  Sender: FDA-Public Use
  Company Number: None

PATIENT
  Sex: Female

DRUGS (1)
  1. GADAVIST [Suspect]
     Active Substance: GADOBUTROL

REACTIONS (7)
  - Iatrogenic injury [None]
  - Product complaint [None]
  - Disability [None]
  - Cerebral cyst [None]
  - Central nervous system lesion [None]
  - Pain [None]
  - Dose calculation error [None]
